FAERS Safety Report 21986472 (Version 1)
Quarter: 2023Q1

REPORT INFORMATION
  Report Type: Spontaneous
  Country: US (occurrence: US)
  Receive Date: 20230213
  Receipt Date: 20230213
  Transmission Date: 20230418
  Serious: No
  Sender: FDA-Public Use
  Company Number: US-GE HEALTHCARE-2022CSU009267

PATIENT
  Age: 44 Year
  Sex: Female
  Weight: 99.773 kg

DRUGS (4)
  1. CLARISCAN [Suspect]
     Active Substance: GADOTERATE MEGLUMINE
     Indication: Magnetic resonance imaging
     Dosage: 20 ML, SINGLE
     Route: 042
     Dates: start: 20221210, end: 20221210
  2. CLARISCAN [Suspect]
     Active Substance: GADOTERATE MEGLUMINE
     Indication: Haemorrhage
  3. CLARISCAN [Suspect]
     Active Substance: GADOTERATE MEGLUMINE
     Indication: Adenomyosis
  4. VALIUM [Concomitant]
     Active Substance: DIAZEPAM
     Indication: Claustrophobia
     Dosage: UNK
     Route: 048
     Dates: start: 20221210

REACTIONS (2)
  - Vomiting [Unknown]
  - Pruritus [Unknown]

NARRATIVE: CASE EVENT DATE: 20221210
